FAERS Safety Report 24838381 (Version 1)
Quarter: 2025Q1

REPORT INFORMATION
  Report Type: Spontaneous
  Country: US (occurrence: US)
  Receive Date: 20250113
  Receipt Date: 20250113
  Transmission Date: 20250408
  Serious: Yes (Hospitalization)
  Sender: ALKERMES
  Company Number: US-ALKERMES INC.-ALK-2025-000042

PATIENT
  Sex: Female
  Weight: 42.63 kg

DRUGS (5)
  1. VIVITROL [Suspect]
     Active Substance: NALTREXONE
     Indication: Alcoholism
     Route: 030
     Dates: start: 2015
  2. DIPHENHYDRAMINE [Suspect]
     Active Substance: DIPHENHYDRAMINE
     Indication: Intentional overdose
     Route: 065
  3. ACETAMINOPHEN [Suspect]
     Active Substance: ACETAMINOPHEN
     Indication: Intentional overdose
     Route: 065
  4. METOPROLOL [Concomitant]
     Active Substance: METOPROLOL
     Indication: Product used for unknown indication
     Route: 065
  5. TOPIRAMATE [Concomitant]
     Active Substance: TOPIRAMATE
     Indication: Product used for unknown indication
     Route: 065

REACTIONS (15)
  - Intentional overdose [Recovered/Resolved]
  - Coma [Recovered/Resolved]
  - Hepatic failure [Unknown]
  - Renal failure [Unknown]
  - Suicide attempt [Recovered/Resolved]
  - Paradoxical drug reaction [Unknown]
  - Eating disorder symptom [Unknown]
  - Drug ineffective [Unknown]
  - Needle issue [Recovered/Resolved]
  - Injection site pain [Unknown]
  - Hypoaesthesia [Unknown]
  - Alcoholism [Unknown]
  - Blood pressure increased [Unknown]
  - Anxiety [Unknown]
  - Weight decreased [Unknown]

NARRATIVE: CASE EVENT DATE: 20240101
